FAERS Safety Report 7640949-X (Version None)
Quarter: 2011Q3

REPORT INFORMATION
  Report Type: 
  Country: None (occurrence: None)
  Receive Date: 20110728
  Receipt Date: 20110725
  Transmission Date: 20111222
  Serious: Yes (Death)
  Sender: FDA-Public Use
  Company Number: US-SANOFI-AVENTIS-2011SA047618

PATIENT
  Sex: Male

DRUGS (2)
  1. UROXATRAL [Suspect]
     Route: 048
  2. TAMSULOSIN HYDROCHLORIDE [Suspect]
     Route: 065

REACTIONS (1)
  - DEATH [None]
